FAERS Safety Report 7297612-7 (Version None)
Quarter: 2011Q1

REPORT INFORMATION
  Report Type: 
  Country: None (occurrence: None)
  Receive Date: 20110216
  Receipt Date: 20110202
  Transmission Date: 20110831
  Serious: Yes (Life-Threatening, Hospitalization, Other)
  Sender: FDA-Public Use
  Company Number: JP-CELGENEUS-087-21880-11011577

PATIENT
  Sex: Female

DRUGS (22)
  1. REVLIMID [Suspect]
     Route: 048
     Dates: start: 20101027, end: 20101103
  2. BETAMETHASONE [Concomitant]
     Indication: MULTIPLE MYELOMA
     Route: 048
     Dates: start: 20101016
  3. NOVAMIN [Concomitant]
     Route: 048
     Dates: start: 20101016
  4. REVLIMID [Suspect]
     Indication: MULTIPLE MYELOMA
     Route: 048
     Dates: start: 20101016, end: 20101021
  5. REVLIMID [Suspect]
     Route: 048
     Dates: start: 20101113, end: 20101202
  6. REVLIMID [Suspect]
     Route: 048
     Dates: start: 20101022, end: 20101024
  7. REVLIMID [Suspect]
     Route: 048
     Dates: start: 20101210, end: 20101229
  8. LENADEX [Suspect]
     Route: 048
     Dates: start: 20101201, end: 20101229
  9. MUCOSTA [Concomitant]
     Indication: PROPHYLAXIS
     Route: 048
     Dates: start: 20101016
  10. METHYCOBAL [Concomitant]
     Indication: MULTIPLE MYELOMA
     Route: 048
     Dates: start: 20101016
  11. ETIZOLAM [Concomitant]
     Route: 048
     Dates: start: 20101016
  12. REVLIMID [Suspect]
     Route: 048
     Dates: start: 20110119, end: 20110124
  13. LENADEX [Suspect]
     Indication: MULTIPLE MYELOMA
     Route: 048
     Dates: start: 20101119, end: 20101119
  14. LENADEX [Suspect]
     Route: 048
     Dates: start: 20101126, end: 20101126
  15. DUROTEP [Concomitant]
     Route: 065
  16. FUNGIZONE [Concomitant]
     Indication: MULTIPLE MYELOMA
     Route: 048
     Dates: start: 20101016
  17. PROTECADIN [Concomitant]
     Indication: PROPHYLAXIS
     Route: 048
     Dates: start: 20101016
  18. CALONAL [Concomitant]
     Indication: MULTIPLE MYELOMA
     Route: 048
     Dates: start: 20101016
  19. FENTANYL [Concomitant]
     Route: 061
     Dates: start: 20101201
  20. VALTREX [Concomitant]
     Indication: MULTIPLE MYELOMA
     Route: 048
     Dates: start: 20101016
  21. CEPHARANTHIN [Concomitant]
     Indication: MULTIPLE MYELOMA
     Route: 048
     Dates: start: 20101016
  22. ENSURE LIQUID [Concomitant]
     Indication: MULTIPLE MYELOMA
     Route: 048
     Dates: start: 20101016

REACTIONS (19)
  - PYREXIA [None]
  - BLOOD AMYLASE INCREASED [None]
  - PAIN [None]
  - HYPERTHERMIA [None]
  - ALANINE AMINOTRANSFERASE INCREASED [None]
  - PLATELET COUNT DECREASED [None]
  - BLOOD LACTATE DEHYDROGENASE INCREASED [None]
  - CYSTITIS NONINFECTIVE [None]
  - ALTERED STATE OF CONSCIOUSNESS [None]
  - RHABDOMYOLYSIS [None]
  - ANURIA [None]
  - ASPARTATE AMINOTRANSFERASE INCREASED [None]
  - OCULAR HYPERAEMIA [None]
  - PSYCHIATRIC SYMPTOM [None]
  - BLOOD CREATINE PHOSPHOKINASE INCREASED [None]
  - PYELONEPHRITIS [None]
  - NEUTROPHIL COUNT DECREASED [None]
  - C-REACTIVE PROTEIN INCREASED [None]
  - LIP HAEMORRHAGE [None]
